FAERS Safety Report 19182140 (Version 5)
Quarter: 2021Q3

REPORT INFORMATION
  Report Type: Report from Study
  Country: CL (occurrence: CL)
  Receive Date: 20210426
  Receipt Date: 20210806
  Transmission Date: 20211014
  Serious: Yes (Hospitalization, Other)
  Sender: FDA-Public Use
  Company Number: CL-BRISTOL-MYERS SQUIBB COMPANY-BMS-2021-016293

PATIENT
  Age: 54 Year
  Sex: Male
  Weight: 79 kg

DRUGS (22)
  1. TAMSULOSIN [Concomitant]
     Active Substance: TAMSULOSIN
     Indication: PRODUCT USED FOR UNKNOWN INDICATION
     Dosage: 0.4 MILLIGRAM
     Route: 048
     Dates: start: 2017
  2. PARGEVERINE [Concomitant]
     Active Substance: PARGEVERINE
     Indication: ABDOMINAL PAIN
     Dosage: 1 DOSAGE FORM
     Route: 048
     Dates: start: 20210118
  3. LOPERAMIDE [Concomitant]
     Active Substance: LOPERAMIDE
     Indication: DIARRHOEA
     Dosage: 4 MILLIGRAM, QD
     Route: 048
     Dates: start: 20210118, end: 20210416
  4. PREDNISONE. [Concomitant]
     Active Substance: PREDNISONE
     Indication: AMYLASE INCREASED
     Dosage: 40 MILLIGRAM
     Route: 048
     Dates: start: 20210206, end: 20210415
  5. BMS?986249?01 [Suspect]
     Active Substance: BMS-986249
     Indication: MALIGNANT MELANOMA
     Dosage: 1200 MILLIGRAM
     Route: 065
     Dates: start: 20210106
  6. SODIUM CHLORIDE. [Concomitant]
     Active Substance: SODIUM CHLORIDE
     Dosage: UNK
     Route: 042
     Dates: start: 20210125
  7. NIVOLUMAB [Suspect]
     Active Substance: NIVOLUMAB
     Indication: MALIGNANT MELANOMA
     Dosage: 480 MILLIGRAM
     Route: 042
     Dates: start: 20210106
  8. DESLORATADINE. [Concomitant]
     Active Substance: DESLORATADINE
     Indication: PRURITUS
     Dosage: 5 MILLIGRAM, QD
     Route: 048
     Dates: start: 20210113, end: 20210406
  9. PARGEVERINE [Concomitant]
     Active Substance: PARGEVERINE
     Dosage: 5 GRAM
     Route: 042
     Dates: start: 20210216, end: 20210216
  10. POTASSIUM CHLORIDE. [Concomitant]
     Active Substance: POTASSIUM CHLORIDE
     Indication: DIARRHOEA
     Dosage: 1 DOSAGE FORM
     Route: 042
     Dates: start: 20210125, end: 20210125
  11. LIDOCAINE. [Concomitant]
     Active Substance: LIDOCAINE
     Indication: DIARRHOEA
     Dosage: 1 DOSAGE FORM
     Route: 061
     Dates: start: 20210202, end: 20210416
  12. SODIUM CHLORIDE. [Concomitant]
     Active Substance: SODIUM CHLORIDE
     Indication: DIARRHOEA
     Dosage: UNK
     Route: 042
     Dates: start: 20210118
  13. PHYSIOLOGICAL SALINE SOLUTION [Concomitant]
     Active Substance: SODIUM CHLORIDE
     Dosage: 1000 MILLILITER
     Route: 042
     Dates: start: 20210125, end: 20210125
  14. POTASSIUM CHLORIDE. [Concomitant]
     Active Substance: POTASSIUM CHLORIDE
     Dosage: 2 GRAM
     Route: 042
     Dates: start: 20210208, end: 20210208
  15. UREA. [Concomitant]
     Active Substance: UREA
     Indication: PRURITUS
     Dosage: 1 DOSAGE FORM
     Route: 061
     Dates: start: 20210113
  16. PREDNISONE. [Concomitant]
     Active Substance: PREDNISONE
     Indication: DIARRHOEA
     Dosage: 80 MILLIGRAM, QD
     Route: 042
     Dates: start: 20210125, end: 20210205
  17. PHYSIOLOGICAL SALINE SOLUTION [Concomitant]
     Active Substance: SODIUM CHLORIDE
     Indication: DIARRHOEA
     Dosage: 1 DOSAGE FORM
     Route: 042
     Dates: start: 20210118, end: 20210118
  18. POTASSIUM CHLORIDE. [Concomitant]
     Active Substance: POTASSIUM CHLORIDE
     Dosage: 2 GRAM
     Route: 042
     Dates: start: 20210216, end: 20210216
  19. MAGNESIUM SULPHATE [MAGNESIUM SULFATE] [Concomitant]
     Active Substance: MAGNESIUM SULFATE
     Indication: DIARRHOEA
     Dosage: 1 DOSAGE FORM
     Route: 042
     Dates: start: 20210125, end: 20210125
  20. MAGNESIUM SULPHATE [MAGNESIUM SULFATE] [Concomitant]
     Active Substance: MAGNESIUM SULFATE
     Dosage: 1 GRAM
     Route: 042
     Dates: start: 20210216, end: 20210216
  21. VANCOMYCIN [Concomitant]
     Active Substance: VANCOMYCIN
     Indication: CLOSTRIDIUM DIFFICILE INFECTION
     Dosage: 125 MILLIGRAM
     Route: 048
     Dates: start: 20210208, end: 20210416
  22. METRONIDAZOLE. [Concomitant]
     Active Substance: METRONIDAZOLE
     Indication: CLOSTRIDIUM DIFFICILE INFECTION
     Dosage: 500 MILLIGRAM
     Route: 048
     Dates: start: 20210206, end: 20210416

REACTIONS (1)
  - Colitis ulcerative [Recovered/Resolved with Sequelae]

NARRATIVE: CASE EVENT DATE: 20210216
